FAERS Safety Report 4683692-1 (Version None)
Quarter: 2005Q2

REPORT INFORMATION
  Report Type: 
  Country: None (occurrence: None)
  Receive Date: 20050607
  Receipt Date: 20050602
  Transmission Date: 20051028
  Serious: Yes (Other)
  Sender: FDA-Public Use
  Company Number: 200515097GDDC

PATIENT
  Age: 65 Year
  Sex: Female

DRUGS (10)
  1. LASIX [Suspect]
     Indication: LEFT VENTRICULAR FAILURE
     Route: 048
  2. ARATAC [Suspect]
     Indication: CARDIAC DISORDER
     Route: 048
     Dates: start: 19950101
  3. CAPOTEN [Suspect]
     Indication: ESSENTIAL HYPERTENSION
     Route: 048
  4. OROXINE [Suspect]
     Indication: HYPOTHYROIDISM
     Route: 048
  5. LANOXIN [Suspect]
     Indication: CARDIAC DISORDER
     Route: 048
  6. ALDACTONE [Suspect]
     Indication: ESSENTIAL HYPERTENSION
     Dates: end: 19960223
  7. MOTILIUM [Suspect]
  8. ISORDIL [Suspect]
  9. ACTRAPID [Suspect]
  10. PROTAPHAN [Suspect]

REACTIONS (1)
  - HEPATIC FUNCTION ABNORMAL [None]
